FAERS Safety Report 9840349 (Version 1)
Quarter: 2013Q4

REPORT INFORMATION
  Report Type: Spontaneous
  Country: US (occurrence: None)
  Receive Date: 20131211
  Receipt Date: 20131211
  Transmission Date: 20140711
  Serious: Yes (Life-Threatening, Other)
  Sender: FDA-Public Use
  Company Number: ABR_00887_2013

PATIENT
  Sex: Male

DRUGS (1)
  1. NITROGLYCERIN [Suspect]
     Indication: ANGINA UNSTABLE
     Dosage: EVERY 5 MINUTES, TIMES 3, SUBLINGUAL
     Dates: start: 20130225, end: 20130312

REACTIONS (1)
  - Drug ineffective [None]
